FAERS Safety Report 13654889 (Version 1)
Quarter: 2017Q2

REPORT INFORMATION
  Report Type: Report from Study
  Country: US (occurrence: US)
  Receive Date: 20170615
  Receipt Date: 20170615
  Transmission Date: 20170830
  Serious: Yes (Death, Hospitalization)
  Sender: FDA-Public Use
  Company Number: US-TORRENT-00002827

PATIENT
  Age: 52 Year
  Sex: Female

DRUGS (9)
  1. DILTIAZEM. [Suspect]
     Active Substance: DILTIAZEM
  2. METOPROLOL. [Suspect]
     Active Substance: METOPROLOL
  3. LISINOPRIL. [Suspect]
     Active Substance: LISINOPRIL
  4. PHENYTOIN. [Suspect]
     Active Substance: PHENYTOIN
  5. CARVEDILOL. [Suspect]
     Active Substance: CARVEDILOL
  6. POTASSIUM CHLORIDE. [Suspect]
     Active Substance: POTASSIUM CHLORIDE
  7. CLONIDINE. [Suspect]
     Active Substance: CLONIDINE
  8. DIAMORPHINE [Suspect]
     Active Substance: DIAMORPHINE
  9. CLOPIDOGREL [Suspect]
     Active Substance: CLOPIDOGREL BISULFATE

REACTIONS (2)
  - Toxicity to various agents [Fatal]
  - Medication error [Fatal]
